FAERS Safety Report 8538481-4 (Version None)
Quarter: 2012Q3

REPORT INFORMATION
  Report Type: 
  Country: None (occurrence: None)
  Receive Date: 20120718
  Receipt Date: 20120718
  Transmission Date: 20120928
  Serious: Yes (Hospitalization)
  Sender: FDA-Public Use
  Company Number: None

PATIENT
  Age: 40 Year
  Sex: Male
  Weight: 117.9352 kg

DRUGS (2)
  1. GEODON [Suspect]
     Indication: SCHIZOPHRENIA
     Dosage: 200MG TWICE A DAY
     Dates: start: 20110101, end: 20120101
  2. RISPERDAL [Suspect]
     Dosage: 4 MG TWICE A DAY

REACTIONS (1)
  - OBSESSIVE-COMPULSIVE DISORDER [None]
